FAERS Safety Report 17605017 (Version 1)
Quarter: 2020Q1

REPORT INFORMATION
  Report Type: Spontaneous
  Country: US (occurrence: US)
  Receive Date: 20200331
  Receipt Date: 20200331
  Transmission Date: 20200409
  Serious: Yes (Life-Threatening, Other)
  Sender: FDA-Public Use
  Company Number: None

PATIENT
  Age: 49 Year
  Sex: Female
  Weight: 63.9 kg

DRUGS (1)
  1. MONTELUKAST [Suspect]
     Active Substance: MONTELUKAST SODIUM
     Indication: DYSPNOEA
     Dosage: ?          QUANTITY:1 TABLET(S);?
     Dates: start: 20171115, end: 20200214

REACTIONS (4)
  - Amnesia [None]
  - Agitated depression [None]
  - Suicidal ideation [None]
  - Abnormal dreams [None]

NARRATIVE: CASE EVENT DATE: 20200214
